FAERS Safety Report 21211059 (Version 1)
Quarter: 2022Q3

REPORT INFORMATION
  Report Type: Spontaneous
  Country: US (occurrence: None)
  Receive Date: 20220812
  Receipt Date: 20220812
  Transmission Date: 20221027
  Serious: Yes (Death)
  Sender: FDA-Public Use
  Company Number: None

PATIENT
  Age: 89 Year
  Sex: Male

DRUGS (10)
  1. ABIRATERONE ACETATE [Suspect]
     Active Substance: ABIRATERONE ACETATE
     Indication: Prostate cancer
     Dosage: 250 MG ORAL?TAKE 4 TABLETS (1000MG) BY MOUTH EVERY DAY.  TAKE WHOLE ON EMPTY STOMACH, 1 HOUR OR 2 HO
     Route: 048
  2. ABIRATERONE ACETATE [Suspect]
     Active Substance: ABIRATERONE ACETATE
     Dosage: FREQUENCY : AS DIRECTED;?
     Route: 048
     Dates: start: 20210527
  3. CARBIDOPA [Concomitant]
     Active Substance: CARBIDOPA
  4. CASODEX [Concomitant]
     Active Substance: BICALUTAMIDE
  5. MIRALAX POW [Concomitant]
  6. OMEPRAZOLE [Concomitant]
     Active Substance: OMEPRAZOLE
  7. PRESERVISION CAP AREDS2 [Concomitant]
  8. SENNOSIDES [Concomitant]
     Active Substance: SENNOSIDES
  9. VITAMIN D [Concomitant]
     Active Substance: VITAMIN D NOS
  10. PREDNISONE [Concomitant]
     Active Substance: PREDNISONE

REACTIONS (1)
  - Death [None]

NARRATIVE: CASE EVENT DATE: 20211009
